FAERS Safety Report 18895150 (Version 1)
Quarter: 2021Q1

REPORT INFORMATION
  Report Type: Spontaneous
  Country: US (occurrence: US)
  Receive Date: 20210215
  Receipt Date: 20210215
  Transmission Date: 20210420
  Serious: No
  Sender: FDA-Public Use
  Company Number: US-PFIZER INC-2021123729

PATIENT
  Age: 85 Year
  Sex: Female

DRUGS (1)
  1. IBRANCE [Suspect]
     Active Substance: PALBOCICLIB
     Indication: BREAST CANCER FEMALE
     Dosage: 75 MG, CYCLIC (TAKE 1 TABLET ONCE DAILY ON DAYS 1 TO 21,FOLLOWED BY 7DAYS REST,REPEATED EVERY28DAYS)
     Route: 048
     Dates: start: 202101

REACTIONS (2)
  - Nausea [Unknown]
  - Fatigue [Unknown]
